FAERS Safety Report 11029721 (Version 1)
Quarter: 2015Q2

REPORT INFORMATION
  Report Type: Spontaneous
  Country: GB (occurrence: GB)
  Receive Date: 20150415
  Receipt Date: 20150415
  Transmission Date: 20150821
  Serious: Yes (Other)
  Sender: FDA-Public Use
  Company Number: GB-BAYER-2015-129861

PATIENT
  Age: 45 Year
  Sex: Female
  Weight: 71.21 kg

DRUGS (1)
  1. MIRENA [Suspect]
     Active Substance: LEVONORGESTREL
     Dosage: 20 MCG/24HR, CONT
     Route: 015
     Dates: start: 201410, end: 20150316

REACTIONS (8)
  - Hypertension [Not Recovered/Not Resolved]
  - Menorrhagia [Not Recovered/Not Resolved]
  - Anaemia [Not Recovered/Not Resolved]
  - Heart rate increased [Not Recovered/Not Resolved]
  - Vaginal haemorrhage [Not Recovered/Not Resolved]
  - Hypopnoea [Unknown]
  - Dizziness [Unknown]
  - Chest pain [Unknown]

NARRATIVE: CASE EVENT DATE: 201410
